FAERS Safety Report 6916282-8 (Version None)
Quarter: 2010Q3

REPORT INFORMATION
  Report Type: 
  Country: None (occurrence: None)
  Receive Date: 20100810
  Receipt Date: 20100729
  Transmission Date: 20110219
  Serious: Yes (Hospitalization)
  Sender: FDA-Public Use
  Company Number: KR-PFIZER INC-2010095615

PATIENT
  Age: 56 Year
  Sex: Female
  Weight: 55.8 kg

DRUGS (1)
  1. SUTENE [Suspect]
     Indication: BILE DUCT CANCER
     Dosage: 25 MG, 1X/DAY
     Dates: start: 20100430, end: 20100721

REACTIONS (1)
  - PNEUMONIA [None]
